FAERS Safety Report 10263002 (Version 2)
Quarter: 2014Q2

REPORT INFORMATION
  Report Type: Report from Study
  Country: US (occurrence: US)
  Receive Date: 20140626
  Receipt Date: 20140626
  Transmission Date: 20141212
  Serious: Yes (Other)
  Sender: FDA-Public Use
  Company Number: US-MYLANLABS-2013S1025798

PATIENT
  Age: 29 Year
  Sex: Male
  Weight: 121.56 kg

DRUGS (6)
  1. CLOZAPINE TABLETS [Suspect]
     Indication: SCHIZOAFFECTIVE DISORDER
     Route: 048
     Dates: start: 20130722, end: 20130812
  2. HALDOL [Concomitant]
     Dosage: BEEN ON OVER A YEAR
  3. DEPAKOTE [Concomitant]
     Dosage: BEEN ON OVER A YEAR
  4. REMERON [Concomitant]
     Dosage: BEEN ON OVER A YEAR
  5. CYMBALTA [Concomitant]
     Dosage: BEEN ON OVER A YEAR
  6. COGENTIN [Concomitant]
     Dosage: BEEN ON OVER A YEAR

REACTIONS (3)
  - Drug ineffective [Recovered/Resolved]
  - Schizoaffective disorder [Recovered/Resolved]
  - Granulocytopenia [Recovered/Resolved]
